FAERS Safety Report 21787188 (Version 1)
Quarter: 2022Q4

REPORT INFORMATION
  Report Type: Report from Study
  Country: ES (occurrence: ES)
  Receive Date: 20221228
  Receipt Date: 20221228
  Transmission Date: 20230112
  Serious: Yes (Hospitalization, Other)
  Sender: FDA-Public Use
  Company Number: ES-TAKEDA-2022TUS092044

PATIENT
  Age: 3 Year
  Sex: Female

DRUGS (8)
  1. TEDUGLUTIDE [Suspect]
     Active Substance: TEDUGLUTIDE
     Indication: Short-bowel syndrome
     Dosage: UNK
     Route: 042
  2. TEDUGLUTIDE [Suspect]
     Active Substance: TEDUGLUTIDE
     Indication: Short-bowel syndrome
     Dosage: UNK
     Route: 042
  3. TEDUGLUTIDE [Suspect]
     Active Substance: TEDUGLUTIDE
     Indication: Short-bowel syndrome
     Dosage: UNK
     Route: 042
  4. TEDUGLUTIDE [Suspect]
     Active Substance: TEDUGLUTIDE
     Indication: Short-bowel syndrome
     Dosage: UNK
     Route: 042
  5. Salvacolina [Concomitant]
     Indication: Parenteral nutrition
     Dosage: 0.6 MILLIGRAM, BID
     Route: 048
     Dates: start: 20220712, end: 20220927
  6. RIFAXIMIN [Concomitant]
     Active Substance: RIFAXIMIN
     Indication: Gastrointestinal disorder
     Dosage: 70 MILLIGRAM, 2/MONTH
     Route: 048
     Dates: start: 20220927
  7. METRONIDAZOLE [Concomitant]
     Active Substance: METRONIDAZOLE
     Indication: Gastrointestinal disorder
     Dosage: 100 MILLIGRAM, 2/MONTH
     Route: 048
     Dates: start: 20220927
  8. CHOLESTYRAMINE [Concomitant]
     Active Substance: CHOLESTYRAMINE
     Indication: Abnormal faeces
     Dosage: 1 GRAM, TID
     Route: 048
     Dates: start: 20220712

REACTIONS (1)
  - Stoma site discharge [Recovered/Resolved]

NARRATIVE: CASE EVENT DATE: 20220622
